FAERS Safety Report 25358828 (Version 1)
Quarter: 2025Q2

REPORT INFORMATION
  Report Type: Spontaneous
  Country: GB (occurrence: GB)
  Receive Date: 20250526
  Receipt Date: 20250526
  Transmission Date: 20250717
  Serious: Yes (Other)
  Sender: NORDIC PHARMA
  Company Number: None

PATIENT
  Age: 64 Year
  Sex: Female
  Weight: 77 kg

DRUGS (2)
  1. METHOTREXATE [Suspect]
     Active Substance: METHOTREXATE
     Indication: Aortitis
  2. LEVOTHYROXINE [Concomitant]
     Active Substance: LEVOTHYROXINE

REACTIONS (2)
  - Basal cell carcinoma [Recovered/Resolved with Sequelae]
  - Product use in unapproved indication [Unknown]
